FAERS Safety Report 25313111 (Version 1)
Quarter: 2025Q2

REPORT INFORMATION
  Report Type: Spontaneous
  Country: US (occurrence: US)
  Receive Date: 20250514
  Receipt Date: 20250514
  Transmission Date: 20250716
  Serious: No
  Sender: UCB
  Company Number: US-UCBSA-2024051521

PATIENT
  Sex: Female

DRUGS (5)
  1. CIMZIA [Suspect]
     Active Substance: CERTOLIZUMAB PEGOL
     Indication: Ankylosing spondylitis
     Dosage: 200 MILLIGRAM, EV 2 WEEKS(QOW)
     Route: 058
     Dates: start: 202205
  2. OVIDREL [Concomitant]
     Active Substance: CHORIOGONADOTROPIN ALFA
     Indication: Product used for unknown indication
  3. PROGESTERONE [Concomitant]
     Active Substance: PROGESTERONE
     Indication: Product used for unknown indication
  4. XOLAIR [Concomitant]
     Active Substance: OMALIZUMAB
     Indication: Asthma
  5. XOLAIR [Concomitant]
     Active Substance: OMALIZUMAB
     Indication: Urticaria

REACTIONS (1)
  - Hypersensitivity [Unknown]
